FAERS Safety Report 18209191 (Version 2)
Quarter: 2020Q3

REPORT INFORMATION
  Report Type: Spontaneous
  Country: US (occurrence: US)
  Receive Date: 20200828
  Receipt Date: 20200924
  Transmission Date: 20201103
  Serious: No
  Sender: FDA-Public Use
  Company Number: US-BAUSCH-BL-2020-023694

PATIENT
  Age: 78 Year
  Sex: Female

DRUGS (5)
  1. PROLENSA [Suspect]
     Active Substance: BROMFENAC SODIUM
     Indication: EYE PAIN
     Route: 047
     Dates: start: 2019
  2. GABAPENTIN. [Concomitant]
     Active Substance: GABAPENTIN
     Indication: EYE PAIN
  3. PROLENSA [Suspect]
     Active Substance: BROMFENAC SODIUM
     Indication: VISION BLURRED
     Dosage: NEW BOTTLE
     Route: 047
  4. LISINOPRIL. [Concomitant]
     Active Substance: LISINOPRIL
     Indication: RENAL DISORDER
     Dosage: ONCE A DAY?STARTED FEW YEARS AGO
     Route: 065
  5. ATORVASTATIN [Concomitant]
     Active Substance: ATORVASTATIN
     Indication: BLOOD CHOLESTEROL INCREASED
     Route: 065
     Dates: start: 2019

REACTIONS (4)
  - Eye pain [Unknown]
  - Product quality issue [Unknown]
  - Eye irritation [Recovered/Resolved]
  - Product colour issue [Unknown]

NARRATIVE: CASE EVENT DATE: 2020
